FAERS Safety Report 7633029-0 (Version None)
Quarter: 2011Q3

REPORT INFORMATION
  Report Type: 
  Country: None (occurrence: None)
  Receive Date: 20110725
  Receipt Date: 20110715
  Transmission Date: 20111222
  Serious: Yes (Other)
  Sender: FDA-Public Use
  Company Number: PHHY2011DE64600

PATIENT
  Sex: Female
  Weight: 81 kg

DRUGS (6)
  1. VITAMIN D [Concomitant]
     Indication: OSTEOPOROSIS
     Dosage: UNK UKN, UNK
  2. CALCIUM CARBONATE [Concomitant]
     Indication: OSTEOPOROSIS
     Dosage: 1000 MG, QD
  3. SPASCUPREEL [Concomitant]
     Indication: PAIN
     Dosage: UNK UKN, UNK
  4. ZOLEDRONOC ACID [Suspect]
     Dosage: 5 MG, ONCE YEARLY
     Route: 042
     Dates: start: 20100430
  5. BERLOSIN [Concomitant]
     Indication: PAIN
     Dosage: UNK UKN, PRN
  6. IBUPROFEN [Concomitant]
     Indication: PAIN
     Dosage: UNK UKN, QD

REACTIONS (1)
  - LUMBAR VERTEBRAL FRACTURE [None]
